FAERS Safety Report 5636058-1 (Version None)
Quarter: 2008Q1

REPORT INFORMATION
  Report Type: 
  Country: None (occurrence: None)
  Receive Date: 20080220
  Receipt Date: 20080220
  Transmission Date: 20080703
  Serious: Yes (Life-Threatening, Hospitalization)
  Sender: FDA-Public Use
  Company Number: None

PATIENT
  Age: 64 Year
  Sex: Male
  Weight: 37 kg

DRUGS (8)
  1. BARACLUDE [Suspect]
     Indication: HEPATITIS B
     Dosage: 0.5 MG ONCE A DAY PO
     Route: 048
     Dates: start: 20080122, end: 20080212
  2. CHINESE MEDICAL HERBS UNKNOWN UNKNOWN [Suspect]
     Indication: SQUAMOUS CELL CARCINOMA
     Dates: start: 20080131, end: 20080212
  3. LAPATINIB [Concomitant]
  4. ONDANSETRON [Concomitant]
  5. CONENTRATE [Concomitant]
  6. MIRALAX [Concomitant]
  7. OXYCODONE HCL [Concomitant]
  8. NAPHAZOLINE HYDROCHLORIDE OPTHALMIC SOLN [Concomitant]

REACTIONS (5)
  - CHILLS [None]
  - FEEDING TUBE COMPLICATION [None]
  - HAEMOLYTIC ANAEMIA [None]
  - HYPERTENSION [None]
  - TRANSFUSION REACTION [None]
